FAERS Safety Report 11068745 (Version 1)
Quarter: 2015Q2

REPORT INFORMATION
  Report Type: Spontaneous
  Country: US (occurrence: US)
  Receive Date: 20150427
  Receipt Date: 20150427
  Transmission Date: 20150821
  Serious: Yes (Death)
  Sender: FDA-Public Use
  Company Number: US-TEVA-557512USA

PATIENT
  Age: 52 Year
  Sex: Male

DRUGS (4)
  1. DIHYDROCODEINE [Suspect]
     Active Substance: DIHYDROCODEINE
     Indication: PRODUCT USED FOR UNKNOWN INDICATION
     Dosage: OVERDOSE NOT PROVIDED
     Route: 065
  2. CITALOPRAM [Suspect]
     Active Substance: CITALOPRAM HYDROBROMIDE
     Indication: PRODUCT USED FOR UNKNOWN INDICATION
     Dosage: OVERDOSE NOT PROVIDED
     Route: 065
  3. HYDROCODONE [Suspect]
     Active Substance: HYDROCODONE
     Indication: PRODUCT USED FOR UNKNOWN INDICATION
     Dosage: OVERDOSE NOT PROVIDED
     Route: 065
  4. FENTANYL. [Suspect]
     Active Substance: FENTANYL
     Indication: PRODUCT USED FOR UNKNOWN INDICATION
     Dosage: 75 MICROG/HOUR
     Route: 062

REACTIONS (1)
  - Overdose [Fatal]
